FAERS Safety Report 8366115-0 (Version None)
Quarter: 2012Q2

REPORT INFORMATION
  Report Type: 
  Country: None (occurrence: None)
  Receive Date: 20120516
  Receipt Date: 20120516
  Transmission Date: 20120825
  Serious: Yes (Life-Threatening, Disabling, Other)
  Sender: FDA-Public Use
  Company Number: None

PATIENT
  Sex: Female
  Weight: 68.0396 kg

DRUGS (2)
  1. DIVALPROEX SODIUM [Suspect]
     Indication: BIPOLAR DISORDER
     Dosage: 3 TAB @ BEDTIME 1 ONCE A DAY  SCN CODE V2774883700. 01010111 FORCED USAGE BY HUMANA
     Dates: start: 20120101, end: 20120301
  2. DIVALPROEX SODIUM [Suspect]
     Indication: THERAPY CESSATION
     Dosage: 3 TAB @ BEDTIME 1 ONCE A DAY  SCN CODE V2774883700. 01010111 FORCED USAGE BY HUMANA
     Dates: start: 20120101, end: 20120301

REACTIONS (7)
  - DEPRESSION [None]
  - IMPAIRED WORK ABILITY [None]
  - FEELING ABNORMAL [None]
  - SUICIDAL IDEATION [None]
  - MALAISE [None]
  - UNEVALUABLE EVENT [None]
  - FEAR [None]
